FAERS Safety Report 14308937 (Version 1)
Quarter: 2017Q4

REPORT INFORMATION
  Report Type: Spontaneous
  Country: US (occurrence: US)
  Receive Date: 20171220
  Receipt Date: 20171220
  Transmission Date: 20180321
  Serious: Yes (Hospitalization, Other)
  Sender: FDA-Public Use
  Company Number: US-GLAXOSMITHKLINE-US2017192221

PATIENT
  Sex: Female

DRUGS (14)
  1. SINGULAIR [Concomitant]
     Active Substance: MONTELUKAST SODIUM
  2. ARNUITY ELLIPTA [Suspect]
     Active Substance: FLUTICASONE FUROATE
     Indication: ASTHMA
  3. VENTOLIN HFA [Suspect]
     Active Substance: ALBUTEROL SULFATE
     Indication: ASTHMA
  4. MOBIC [Concomitant]
     Active Substance: MELOXICAM
  5. VENTOLIN HFA [Suspect]
     Active Substance: ALBUTEROL SULFATE
     Indication: CHRONIC OBSTRUCTIVE PULMONARY DISEASE
     Dosage: 1 PUFF(S), PRN
     Route: 055
     Dates: start: 2014
  6. ADVAIR DISKUS [Suspect]
     Active Substance: FLUTICASONE PROPIONATE\SALMETEROL XINAFOATE
     Indication: ASTHMA
     Dosage: 100/25
  7. ARNUITY ELLIPTA [Suspect]
     Active Substance: FLUTICASONE FUROATE
     Indication: CHRONIC OBSTRUCTIVE PULMONARY DISEASE
     Dosage: 1 PUFF(S), 1D
     Route: 055
     Dates: start: 2015, end: 20171205
  8. ZOLOFT [Concomitant]
     Active Substance: SERTRALINE HYDROCHLORIDE
  9. LOSARTAN. [Concomitant]
     Active Substance: LOSARTAN
  10. MYRBETRIQ [Concomitant]
     Active Substance: MIRABEGRON
  11. BYSTOLIC [Concomitant]
     Active Substance: NEBIVOLOL HYDROCHLORIDE
  12. COQ10 [Concomitant]
     Active Substance: UBIDECARENONE
  13. LIPITOR [Concomitant]
     Active Substance: ATORVASTATIN CALCIUM
  14. ADVAIR DISKUS [Suspect]
     Active Substance: FLUTICASONE PROPIONATE\SALMETEROL XINAFOATE
     Indication: CHRONIC OBSTRUCTIVE PULMONARY DISEASE
     Dosage: 1 PUFF(S), 1D
     Route: 055
     Dates: start: 2014, end: 2015

REACTIONS (7)
  - Glaucoma [Unknown]
  - Diplopia [Not Recovered/Not Resolved]
  - Myositis [Recovering/Resolving]
  - Myasthenia gravis [Unknown]
  - Underdose [Unknown]
  - Expired product administered [Unknown]
  - Blood pressure increased [Recovered/Resolved]

NARRATIVE: CASE EVENT DATE: 2014
